FAERS Safety Report 6904432-9 (Version None)
Quarter: 2010Q3

REPORT INFORMATION
  Report Type: 
  Country: None (occurrence: None)
  Receive Date: 20100804
  Receipt Date: 20090520
  Transmission Date: 20110219
  Serious: No
  Sender: FDA-Public Use
  Company Number: US-PFIZER INC-2009216504

PATIENT
  Sex: Female
  Weight: 55.782 kg

DRUGS (4)
  1. LYRICA [Suspect]
     Indication: NEUROPATHY PERIPHERAL
     Dosage: 50 MG, 1X/DAY
     Route: 048
     Dates: start: 20090501, end: 20090501
  2. ATIVAN [Concomitant]
     Dosage: UNK
     Route: 048
  3. FOLIC ACID [Concomitant]
     Dosage: UNK
     Route: 048
  4. VITAMIN B12 FOR INJECTION [Concomitant]
     Dosage: UNK

REACTIONS (4)
  - DIZZINESS [None]
  - GAIT DISTURBANCE [None]
  - NAUSEA [None]
  - VISION BLURRED [None]
